FAERS Safety Report 15475550 (Version 2)
Quarter: 2018Q4

REPORT INFORMATION
  Report Type: Spontaneous
  Country: BR (occurrence: BR)
  Receive Date: 20181008
  Receipt Date: 20181101
  Transmission Date: 20190205
  Serious: Yes (Hospitalization)
  Sender: FDA-Public Use
  Company Number: BR-DSJP-DSU-2018-142590

PATIENT

DRUGS (6)
  1. SELOZOK [Suspect]
     Active Substance: METOPROLOL SUCCINATE
     Indication: BLOOD PRESSURE MANAGEMENT
     Dosage: 50 UNK, QD (IN THE MORNING)
     Route: 065
  2. ACERTIL                            /00790702/ [Suspect]
     Active Substance: PERINDOPRIL ERBUMINE
     Indication: BLOOD PRESSURE MANAGEMENT
     Dosage: 10 MG, QD (IN THE MORNING)
     Route: 065
  3. NEMODINE                           /00495202/ [Suspect]
     Active Substance: KETOTIFEN FUMARATE
     Indication: HEADACHE
     Dosage: 5 MG, AS NEEDED
     Route: 065
  4. NEMODINE                           /00495202/ [Suspect]
     Active Substance: KETOTIFEN FUMARATE
     Indication: HYPERTENSION
     Dosage: 5 MG, QD
     Route: 065
  5. OLMETEC HCT 20/12.5 [Suspect]
     Active Substance: HYDROCHLOROTHIAZIDE\OLMESARTAN MEDOXOMIL
     Indication: HYPERTENSION
     Dosage: 1 DF (20/12.5 MG), QD (IN THE MORNING)
     Route: 065
     Dates: start: 2013
  6. OLMETEC HCT 20/12.5 [Suspect]
     Active Substance: HYDROCHLOROTHIAZIDE\OLMESARTAN MEDOXOMIL
     Dosage: 1 DF (20/12.5 MG), QD (IN THE MORNING)
     Route: 065

REACTIONS (3)
  - Drug ineffective [Unknown]
  - Viral infection [Recovered/Resolved]
  - Gastric disorder [Not Recovered/Not Resolved]

NARRATIVE: CASE EVENT DATE: 2017
